FAERS Safety Report 23153409 (Version 1)
Quarter: 2023Q4

REPORT INFORMATION
  Report Type: Spontaneous
  Country: US (occurrence: None)
  Receive Date: 20231106
  Receipt Date: 20231106
  Transmission Date: 20240110
  Serious: Yes (Hospitalization)
  Sender: FDA-Public Use
  Company Number: None

PATIENT
  Sex: Female

DRUGS (3)
  1. PACLITAXEL [Suspect]
     Active Substance: PACLITAXEL
     Dosage: OTHER QUANTITY : 0.39 INJECTION(S);?
     Dates: start: 20231013, end: 20231013
  2. CISPLATIN [Suspect]
     Active Substance: CISPLATIN
  3. PEMBROLIZUMAB [Suspect]
     Active Substance: PEMBROLIZUMAB

REACTIONS (3)
  - Lymphadenopathy [None]
  - Pyrexia [None]
  - Myelosuppression [None]

NARRATIVE: CASE EVENT DATE: 20231017
